FAERS Safety Report 6271582-2 (Version None)
Quarter: 2009Q3

REPORT INFORMATION
  Report Type: 
  Country: None (occurrence: None)
  Receive Date: 20090713
  Receipt Date: 20090515
  Transmission Date: 20100115
  Serious: Yes (Other)
  Sender: FDA-Public Use
  Company Number: 60387

PATIENT
  Age: 75 Year
  Sex: Male

DRUGS (1)
  1. VECURONIUM BROMIDE [Suspect]
     Dosage: 10MG;5MG
     Dates: start: 20090514

REACTIONS (1)
  - DRUG INEFFECTIVE [None]
